FAERS Safety Report 11093040 (Version 1)
Quarter: 2015Q2

REPORT INFORMATION
  Report Type: Spontaneous
  Country: US (occurrence: None)
  Receive Date: 20150504
  Receipt Date: 20150504
  Transmission Date: 20150821
  Serious: Yes (Other)
  Sender: FDA-Public Use
  Company Number: 2015AKN00243

PATIENT
  Age: 43 Year
  Sex: Female
  Weight: 77.1 kg

DRUGS (4)
  1. MYORISAN [Suspect]
     Active Substance: ISOTRETINOIN
     Indication: ACNE
     Dates: start: 201501, end: 20150311
  2. MYORISAN [Suspect]
     Active Substance: ISOTRETINOIN
     Indication: ACNE
     Dates: start: 201501, end: 20150311
  3. MYORISAN [Suspect]
     Active Substance: ISOTRETINOIN
     Indication: ACNE
     Dates: start: 201412, end: 20150311
  4. CLARAVIS [Suspect]
     Active Substance: ISOTRETINOIN
     Indication: ACNE
     Dates: start: 201502, end: 20150311

REACTIONS (3)
  - Gastrointestinal haemorrhage [None]
  - Ischaemia [None]
  - Diarrhoea [None]

NARRATIVE: CASE EVENT DATE: 20150311
